FAERS Safety Report 23417471 (Version 1)
Quarter: 2024Q1

REPORT INFORMATION
  Report Type: Spontaneous
  Country: None (occurrence: US)
  Receive Date: 20240118
  Receipt Date: 20240118
  Transmission Date: 20240409
  Serious: No
  Sender: FDA-Public Use
  Company Number: US-Ascend Therapeutics US, LLC-2151525

PATIENT
  Age: 16 Month
  Sex: Male

DRUGS (2)
  1. ANDROGEL 1% [Suspect]
     Active Substance: TESTOSTERONE
     Indication: Product used for unknown indication
     Route: 065
  2. TESTOSTERONE [Suspect]
     Active Substance: TESTOSTERONE
     Route: 065

REACTIONS (3)
  - Penis disorder [Recovered/Resolved]
  - Hair texture abnormal [Recovered/Resolved]
  - Exposure via grandfather [Unknown]
